FAERS Safety Report 13624213 (Version 2)
Quarter: 2017Q2

REPORT INFORMATION
  Report Type: Spontaneous
  Country: JP (occurrence: JP)
  Receive Date: 20170607
  Receipt Date: 20170629
  Transmission Date: 20170830
  Serious: Yes (Life-Threatening, Hospitalization, Other)
  Sender: FDA-Public Use
  Company Number: JP-ELI_LILLY_AND_COMPANY-JP201705004833

PATIENT
  Age: 82 Year
  Sex: Female
  Weight: 48 kg

DRUGS (5)
  1. CYRAMZA [Suspect]
     Active Substance: RAMUCIRUMAB
     Indication: GASTRIC CANCER STAGE IV
     Dosage: 8 MG/KG, UNK
     Route: 042
     Dates: start: 20170329
  2. PACLITAXEL. [Suspect]
     Active Substance: PACLITAXEL
     Dosage: 40 MG/M2, UNK
     Route: 042
     Dates: end: 20170419
  3. CYRAMZA [Suspect]
     Active Substance: RAMUCIRUMAB
     Dosage: 6 MG/KG, UNK
     Route: 042
     Dates: end: 20170517
  4. PACLITAXEL. [Suspect]
     Active Substance: PACLITAXEL
     Indication: GASTRIC CANCER STAGE IV
     Dosage: 60 MG/M2, UNK
     Route: 042
     Dates: start: 20170329
  5. POLARAMINE [Concomitant]
     Active Substance: DEXCHLORPHENIRAMINE MALEATE
     Dosage: 5 MG, OTHER
     Route: 042

REACTIONS (5)
  - Febrile neutropenia [Recovered/Resolved]
  - Neutrophil count decreased [Recovered/Resolved]
  - Hepatic encephalopathy [Recovered/Resolved]
  - Condition aggravated [Unknown]
  - Hepatic atrophy [Unknown]

NARRATIVE: CASE EVENT DATE: 20170405
